FAERS Safety Report 20519752 (Version 5)
Quarter: 2022Q3

REPORT INFORMATION
  Report Type: Report from Study
  Country: US (occurrence: US)
  Receive Date: 20220225
  Receipt Date: 20220625
  Transmission Date: 20221027
  Serious: Yes (Other)
  Sender: FDA-Public Use
  Company Number: NVSC2022US043930

PATIENT
  Sex: Male

DRUGS (1)
  1. ENTRESTO [Suspect]
     Active Substance: SACUBITRIL\VALSARTAN
     Indication: Cardiac failure chronic
     Dosage: 1 DOSAGE FORM (24/26 MG), BID (24/26 )
     Route: 048

REACTIONS (11)
  - Atrial fibrillation [Unknown]
  - Sinusitis [Unknown]
  - Cough [Unknown]
  - Peripheral swelling [Unknown]
  - Dyspnoea [Unknown]
  - Seasonal allergy [Unknown]
  - Abdominal distension [Recovering/Resolving]
  - Asthenia [Unknown]
  - Swelling [Recovering/Resolving]
  - Hypoaesthesia [Unknown]
  - Carpal tunnel syndrome [Unknown]
